FAERS Safety Report 4765175-3 (Version None)
Quarter: 2005Q3

REPORT INFORMATION
  Report Type: 
  Country: None (occurrence: None)
  Receive Date: 20050906
  Receipt Date: 20050819
  Transmission Date: 20060218
  Serious: Yes (Death)
  Sender: FDA-Public Use
  Company Number: DSA_70686_2005

PATIENT
  Age: 76 Year
  Sex: Male

DRUGS (3)
  1. ROXANOL [Suspect]
     Indication: PAIN MANAGEMENT
     Dosage: 1 TSP ONCE PO
     Route: 048
     Dates: start: 20041208
  2. TYLENOL [Concomitant]
  3. SCOPOLAMINE [Concomitant]

REACTIONS (9)
  - DRUG DISPENSING ERROR [None]
  - DYSPHAGIA [None]
  - DYSPNOEA [None]
  - EYE ROLLING [None]
  - INCORRECT DOSE ADMINISTERED [None]
  - LOSS OF CONSCIOUSNESS [None]
  - ORAL INTAKE REDUCED [None]
  - OVERDOSE [None]
  - SPEECH DISORDER [None]
